FAERS Safety Report 10257160 (Version 6)
Quarter: 2014Q4

REPORT INFORMATION
  Report Type: Report from Study
  Country: US (occurrence: US)
  Receive Date: 20140625
  Receipt Date: 20141008
  Transmission Date: 20150528
  Serious: Yes (Hospitalization, Other)
  Sender: FDA-Public Use
  Company Number: US-ALEXION-A201402387

PATIENT

DRUGS (6)
  1. SOLIRIS [Suspect]
     Active Substance: ECULIZUMAB
     Indication: HAEMOLYTIC URAEMIC SYNDROME
     Dosage: 900 MG, Q2W
     Route: 042
     Dates: start: 20140507
  2. SUPRAX                             /00821801/ [Concomitant]
     Indication: PRODUCT USED FOR UNKNOWN INDICATION
     Dosage: UNK
     Route: 065
     Dates: start: 20140507
  3. PENICILLIN                         /00000901/ [Concomitant]
     Active Substance: PENICILLIN
     Indication: PRODUCT USED FOR UNKNOWN INDICATION
     Dosage: 250 MG, BID
     Route: 065
     Dates: start: 20140507
  4. SOLIRIS [Suspect]
     Active Substance: ECULIZUMAB
     Dosage: 900 MG, QW
     Route: 042
     Dates: start: 20140507
  5. SOLIRIS [Suspect]
     Active Substance: ECULIZUMAB
     Dosage: 1200 MG, QW
     Route: 042
  6. FLAGYL [Concomitant]
     Active Substance: METRONIDAZOLE\METRONIDAZOLE HYDROCHLORIDE
     Indication: PRODUCT USED FOR UNKNOWN INDICATION
     Dosage: UNK
     Route: 065
     Dates: start: 20140507

REACTIONS (16)
  - Contusion [Unknown]
  - Renal failure [Unknown]
  - Platelet count decreased [Unknown]
  - Platelet count decreased [Unknown]
  - Inappropriate schedule of drug administration [Unknown]
  - Pyrexia [Unknown]
  - Spleen disorder [Unknown]
  - Ileus [Not Recovered/Not Resolved]
  - Unevaluable event [Unknown]
  - Incorrect dose administered [Not Recovered/Not Resolved]
  - Urinary tract infection [Unknown]
  - Fatigue [Unknown]
  - Blood creatinine decreased [Unknown]
  - Infection [Unknown]
  - Respiratory failure [Unknown]
  - Unevaluable event [Unknown]

NARRATIVE: CASE EVENT DATE: 20140627
